FAERS Safety Report 14587299 (Version 1)
Quarter: 2018Q1

REPORT INFORMATION
  Report Type: Spontaneous
  Country: US (occurrence: US)
  Receive Date: 20180228
  Receipt Date: 20180228
  Transmission Date: 20180509
  Serious: No
  Sender: FDA-Public Use
  Company Number: None

PATIENT
  Age: 50 Year
  Sex: Female
  Weight: 65.25 kg

DRUGS (2)
  1. SPIRONOLACTONE. [Concomitant]
     Active Substance: SPIRONOLACTONE
  2. COMBIPATCH [Suspect]
     Active Substance: ESTRADIOL\NORETHINDRONE ACETATE
     Indication: HORMONE REPLACEMENT THERAPY
     Dosage: QUANTITY:1 PATCH(ES);OTHER FREQUENCY:TWICE WEEKLY;?
     Route: 062
     Dates: start: 20170529, end: 20180228

REACTIONS (1)
  - Application site rash [None]

NARRATIVE: CASE EVENT DATE: 20180103
